FAERS Safety Report 17682672 (Version 2)
Quarter: 2020Q3

REPORT INFORMATION
  Report Type: Spontaneous
  Country: FR (occurrence: FR)
  Receive Date: 20200419
  Receipt Date: 20200706
  Transmission Date: 20201102
  Serious: Yes (Death)
  Sender: FDA-Public Use
  Company Number: NVSC2020FR102779

PATIENT
  Age: 9 Year
  Sex: Female
  Weight: 30 kg

DRUGS (5)
  1. ACETAMINOPHEN (PARACETAMOL) [Suspect]
     Active Substance: ACETAMINOPHEN
     Indication: DENTAL DISCOMFORT
     Dosage: 4 TABS AFTER 4 HRS
     Route: 065
  2. MANNITOL. [Concomitant]
     Active Substance: MANNITOL
     Indication: INTRACRANIAL PRESSURE INCREASED
     Dosage: UNK
     Route: 040
  3. THIOPENTAL SODIUM. [Concomitant]
     Active Substance: THIOPENTAL SODIUM
     Indication: INTRACRANIAL PRESSURE INCREASED
     Dosage: UNK
     Route: 040
  4. ACETAMINOPHEN (PARACETAMOL) [Suspect]
     Active Substance: ACETAMINOPHEN
     Dosage: FOUR THERAPEUTIC DOSES OF ACETAMINOPHEN AT 4?H INTERVALS BETWEEN EACH DOSE
     Route: 048
  5. DOBUTAMINE [Concomitant]
     Active Substance: DOBUTAMINE HYDROCHLORIDE
     Indication: CARDIAC FAILURE
     Dosage: UNK
     Route: 065

REACTIONS (25)
  - Encephalopathy [Fatal]
  - Renal tubular necrosis [Fatal]
  - Cardiac failure [Fatal]
  - Haemodynamic instability [Fatal]
  - Hepatic necrosis [Fatal]
  - Headache [Fatal]
  - Confusional state [Fatal]
  - Intracranial pressure increased [Fatal]
  - Hepatic steatosis [Fatal]
  - Hepatic infiltration eosinophilic [Fatal]
  - Drug-induced liver injury [Fatal]
  - Vomiting [Fatal]
  - Subarachnoid haemorrhage [Fatal]
  - Brain oedema [Fatal]
  - Toxicity to various agents [Fatal]
  - Hepatorenal syndrome [Fatal]
  - Brain death [Fatal]
  - Hepatitis fulminant [Fatal]
  - Hepatic failure [Fatal]
  - Mydriasis [Fatal]
  - Acute hepatic failure [Fatal]
  - Somnolence [Fatal]
  - Renal failure [Fatal]
  - Abdominal pain [Fatal]
  - Subdural haemorrhage [Fatal]
